FAERS Safety Report 7112201-2 (Version None)
Quarter: 2010Q4

REPORT INFORMATION
  Report Type: 
  Country: None (occurrence: None)
  Receive Date: 20101119
  Receipt Date: 20100219
  Transmission Date: 20110411
  Serious: No
  Sender: FDA-Public Use
  Company Number: A0846781A

PATIENT
  Age: 25 Year
  Sex: Female

DRUGS (1)
  1. AVODART [Suspect]
     Indication: ACCIDENTAL EXPOSURE
     Route: 062

REACTIONS (1)
  - DRUG EXPOSURE DURING PREGNANCY [None]
